FAERS Safety Report 10408561 (Version 1)
Quarter: 2014Q3

REPORT INFORMATION
  Report Type: Spontaneous
  Country: US (occurrence: None)
  Receive Date: 20140825
  Receipt Date: 20140825
  Transmission Date: 20150326
  Serious: Yes (Other)
  Sender: FDA-Public Use
  Company Number: None

PATIENT
  Age: 55 Year
  Sex: Male

DRUGS (1)
  1. XELODA [Suspect]
     Active Substance: CAPECITABINE
     Indication: COLON CANCER
     Dosage: 1500 MG TWICE DAILY ORALLY?2 WEEKS ON THEN 1 OFF
     Route: 048
     Dates: start: 20130914

REACTIONS (1)
  - Skin discolouration [None]

NARRATIVE: CASE EVENT DATE: 201408
